FAERS Safety Report 17245642 (Version 1)
Quarter: 2020Q1

REPORT INFORMATION
  Report Type: Other
  Country: PL (occurrence: PL)
  Receive Date: 20200108
  Receipt Date: 20200108
  Transmission Date: 20200409
  Serious: Yes (Hospitalization)
  Sender: FDA-Public Use
  Company Number: PL-ORCHID HEALTHCARE-2078647

PATIENT
  Age: 25 Year
  Sex: Male

DRUGS (6)
  1. FLUCONAZOLE. [Concomitant]
     Active Substance: FLUCONAZOLE
     Route: 042
  2. VANCOMYCIN [Concomitant]
     Active Substance: VANCOMYCIN
     Route: 065
  3. TERBINAFINE HYDROCHLORIDE. [Suspect]
     Active Substance: TERBINAFINE HYDROCHLORIDE
     Indication: TINEA BARBAE
     Route: 048
  4. AMOXICILLIN WITH CLAVULANIC ACID [Concomitant]
     Active Substance: AMOXICILLIN\CLAVULANIC ACID
     Route: 042
  5. CEFTRIAXONE. [Concomitant]
     Active Substance: CEFTRIAXONE
     Route: 042
  6. UN SPECIFIED NSAIDS [Concomitant]
     Route: 065

REACTIONS (3)
  - Erythema nodosum [Recovered/Resolved]
  - Arthritis [Recovering/Resolving]
  - Abdominal pain [Recovering/Resolving]
